FAERS Safety Report 13267364 (Version 2)
Quarter: 2017Q1

REPORT INFORMATION
  Report Type: Spontaneous
  Country: FR (occurrence: FR)
  Receive Date: 20170224
  Receipt Date: 20170322
  Transmission Date: 20170428
  Serious: Yes (Hospitalization)
  Sender: FDA-Public Use
  Company Number: FR-JNJFOC-20170219678

PATIENT
  Age: 50 Year
  Sex: Male
  Weight: 59 kg

DRUGS (3)
  1. REMICADE [Suspect]
     Active Substance: INFLIXIMAB
     Indication: COLITIS ULCERATIVE
     Route: 042
  2. ENTYVIO [Suspect]
     Active Substance: VEDOLIZUMAB
     Indication: COLITIS ULCERATIVE
     Dosage: 2 CYCLES
     Route: 042
     Dates: start: 20161208, end: 20161222
  3. IMUREL [Suspect]
     Active Substance: AZATHIOPRINE SODIUM
     Indication: COLITIS ULCERATIVE
     Dosage: 2 CYCLES
     Route: 048
     Dates: end: 201701

REACTIONS (7)
  - Cholangiocarcinoma [Not Recovered/Not Resolved]
  - Colitis ulcerative [Unknown]
  - Jaundice [Not Recovered/Not Resolved]
  - Cholestasis [Not Recovered/Not Resolved]
  - Cholangitis sclerosing [Not Recovered/Not Resolved]
  - Drug ineffective [Unknown]
  - Bile duct stenosis [Not Recovered/Not Resolved]

NARRATIVE: CASE EVENT DATE: 201611
